FAERS Safety Report 18242579 (Version 3)
Quarter: 2021Q2

REPORT INFORMATION
  Report Type: Spontaneous
  Country: US (occurrence: US)
  Receive Date: 20200908
  Receipt Date: 20210617
  Transmission Date: 20210717
  Serious: Yes (Life-Threatening, Hospitalization, Other)
  Sender: FDA-Public Use
  Company Number: US-PURDUE-USA-2020-0164658

PATIENT
  Sex: Female
  Weight: 74.8 kg

DRUGS (29)
  1. OXYCONTIN [Interacting]
     Active Substance: OXYCODONE HYDROCHLORIDE
     Dosage: 60 MG, Q12H PRN
     Route: 048
     Dates: start: 20160915, end: 20171027
  2. OXYCONTIN [Interacting]
     Active Substance: OXYCODONE HYDROCHLORIDE
     Dosage: 30 MG, UNK
     Route: 048
     Dates: start: 20120727, end: 20140410
  3. HYDROMORPHONE HCL ORAL SOLUTION [Interacting]
     Active Substance: HYDROMORPHONE HYDROCHLORIDE
     Indication: PRODUCT USED FOR UNKNOWN INDICATION
     Dosage: UNKNOWN DOSE
     Route: 048
  4. OXYCODONE HCL TABLETS (RHODES 91?490) [Interacting]
     Active Substance: OXYCODONE HYDROCHLORIDE
     Dosage: 15 MG, DAILY
     Route: 048
     Dates: start: 20180725, end: 20180823
  5. OXYCODONE HCL TABLETS (RHODES 91?490) [Interacting]
     Active Substance: OXYCODONE HYDROCHLORIDE
     Dosage: 5 MG, Q8H PRN
     Route: 048
     Dates: start: 20180823, end: 201809
  6. DILAUDID [Interacting]
     Active Substance: HYDROMORPHONE HYDROCHLORIDE
     Indication: PRODUCT USED FOR UNKNOWN INDICATION
     Dosage: UNKNOWN DOSE
     Route: 048
  7. MS CONTIN [Interacting]
     Active Substance: MORPHINE SULFATE
     Indication: PRODUCT USED FOR UNKNOWN INDICATION
     Dosage: UNKNOWN DOSE
     Route: 048
  8. MORPHINE SULFATE EXTENDED?RELEASE TABLETS (RHODES 74?769, 74?862) [Interacting]
     Active Substance: MORPHINE SULFATE
     Indication: PRODUCT USED FOR UNKNOWN INDICATION
     Dosage: UNKNOWN DOSE
     Route: 048
  9. ROXICODONE [Suspect]
     Active Substance: OXYCODONE HYDROCHLORIDE
     Indication: PRODUCT USED FOR UNKNOWN INDICATION
     Dosage: 15 MG, UNK
     Route: 048
  10. OXYCONTIN [Suspect]
     Active Substance: OXYCODONE HYDROCHLORIDE
     Indication: PAIN
     Dosage: 20 MG, UNK
     Route: 048
     Dates: start: 20120510, end: 20120727
  11. OXYCONTIN [Interacting]
     Active Substance: OXYCODONE HYDROCHLORIDE
     Dosage: 10 MG, BID (TAKE 2 TABS IN A.M. + 1 TAB IN P.M. FOR ONE WEEK;)
     Route: 048
     Dates: start: 20180823, end: 201809
  12. OXYCODONE HCL TABLETS (RHODES 91?490) [Interacting]
     Active Substance: OXYCODONE HYDROCHLORIDE
     Dosage: (5 ? 15 MG), Q6? 8H
     Route: 048
     Dates: start: 2012, end: 201809
  13. ROXICODONE [Suspect]
     Active Substance: OXYCODONE HYDROCHLORIDE
     Dosage: 5 MG, UNK
     Route: 048
  14. CLONAZEPAM. [Interacting]
     Active Substance: CLONAZEPAM
     Indication: PRODUCT USED FOR UNKNOWN INDICATION
     Dosage: 1 MG, UNK
  15. OXYCONTIN [Interacting]
     Active Substance: OXYCODONE HYDROCHLORIDE
     Dosage: 40 MG, DAILY
     Route: 048
     Dates: start: 20180725, end: 20180823
  16. OXYCODONE HCL CR TABLETS (SIMILAR TO NDA 22?272) [Interacting]
     Active Substance: OXYCODONE HYDROCHLORIDE
     Dosage: (5 ? 15 MG), Q6? 8H
     Route: 048
     Dates: start: 2012, end: 201809
  17. OXYCODONE HCL TABLETS (RHODES 91?490) [Interacting]
     Active Substance: OXYCODONE HYDROCHLORIDE
     Dosage: 15 MG, Q8H PRN
     Route: 048
     Dates: start: 20160915, end: 20180725
  18. BUPRENORPHINE TRANSDERMAL PATCH (SIMILAR TO NDA 21?306) [Interacting]
     Active Substance: BUPRENORPHINE
     Indication: PRODUCT USED FOR UNKNOWN INDICATION
     Dosage: UNKNOWN DOSE
     Route: 062
  19. TRAMADOL CR TABLETS (RHODES 21?745) [Interacting]
     Active Substance: TRAMADOL
     Indication: PRODUCT USED FOR UNKNOWN INDICATION
     Dosage: UNKNOWN DOSE
     Route: 048
  20. OXYCONTIN [Interacting]
     Active Substance: OXYCODONE HYDROCHLORIDE
     Dosage: 10 MG, DAILY
     Route: 048
     Dates: start: 201809, end: 201809
  21. HYDROCODONE BITARTRATE AND ACETAMINOPHEN [Interacting]
     Active Substance: ACETAMINOPHEN\HYDROCODONE BITARTRATE
     Indication: PRODUCT USED FOR UNKNOWN INDICATION
     Dosage: UNKNOWN DOSE
     Route: 048
  22. OXYCONTIN [Interacting]
     Active Substance: OXYCODONE HYDROCHLORIDE
     Dosage: 40 MG, BID
     Route: 048
     Dates: start: 20171027, end: 20180725
  23. OXYCODONE HCL TABLETS (RHODES 91?490) [Interacting]
     Active Substance: OXYCODONE HYDROCHLORIDE
     Indication: PAIN
     Dosage: 10 MG, Q12H PRN
     Route: 048
     Dates: start: 20120316, end: 20140410
  24. HYDROMORPHONE TABLETS [Interacting]
     Active Substance: HYDROMORPHONE
     Indication: PRODUCT USED FOR UNKNOWN INDICATION
     Dosage: UNKNOWN DOSE
     Route: 048
  25. MARIJUANA [Suspect]
     Active Substance: CANNABIS SATIVA SUBSP. INDICA TOP
     Indication: PRODUCT USED FOR UNKNOWN INDICATION
     Dosage: UNKNOWN
     Route: 065
  26. OXYCONTIN [Interacting]
     Active Substance: OXYCODONE HYDROCHLORIDE
     Dosage: (10 ? 60 MG EVERY 12 HOURS PRN)
     Route: 048
     Dates: start: 2012, end: 201809
  27. OXYCODONE HCL CR TABLETS (SIMILAR TO NDA 22?272) [Interacting]
     Active Substance: OXYCODONE HYDROCHLORIDE
     Indication: PAIN
     Dosage: 10 MG, UNK
     Route: 048
  28. OXYCODONE/ ACETAMINOPHEN TABLETS [Interacting]
     Active Substance: ACETAMINOPHEN\OXYCODONE HYDROCHLORIDE
     Indication: PRODUCT USED FOR UNKNOWN INDICATION
     Dosage: UNKNOWN DOSE
     Route: 048
  29. LORAZEPAM. [Interacting]
     Active Substance: LORAZEPAM
     Indication: PRODUCT USED FOR UNKNOWN INDICATION
     Dosage: 0.5 MG, UNK
     Route: 048

REACTIONS (18)
  - Seizure [Unknown]
  - Bipolar disorder [Not Recovered/Not Resolved]
  - Overdose [Unknown]
  - Drug dependence [Not Recovered/Not Resolved]
  - Pain [Unknown]
  - Acute myocardial infarction [Unknown]
  - Brain injury [Unknown]
  - Multiple sclerosis [Not Recovered/Not Resolved]
  - Back pain [Unknown]
  - Cerebrovascular disorder [Unknown]
  - Gastrointestinal perforation [Unknown]
  - Diabetes mellitus [Not Recovered/Not Resolved]
  - Spina bifida [Unknown]
  - Drug interaction [Unknown]
  - Glomerulonephritis [Unknown]
  - Emotional distress [Unknown]
  - Hypoaesthesia [Unknown]
  - Neuritis [Not Recovered/Not Resolved]

NARRATIVE: CASE EVENT DATE: 2012
